FAERS Safety Report 4674602-1 (Version None)
Quarter: 2005Q2

REPORT INFORMATION
  Report Type: 
  Country: None (occurrence: None)
  Receive Date: 20050526
  Receipt Date: 20050523
  Transmission Date: 20051028
  Serious: Yes (Hospitalization)
  Sender: FDA-Public Use
  Company Number: PHRM2005FR01591

PATIENT
  Age: 49 Year
  Sex: Female

DRUGS (2)
  1. NOVOMIX [Concomitant]
     Indication: DIABETES MELLITUS INSULIN-DEPENDENT
     Route: 048
  2. AREDIA [Suspect]
     Indication: MULTIPLE MYELOMA
     Dosage: 90 MG, QMO
     Route: 042
     Dates: start: 20021204, end: 20050331

REACTIONS (8)
  - ALBUMINURIA [None]
  - BLOOD CREATININE INCREASED [None]
  - GRANULOMA [None]
  - HAEMATURIA [None]
  - HYPOALBUMINAEMIA [None]
  - NEPHROTIC SYNDROME [None]
  - OEDEMA PERIPHERAL [None]
  - PROTEINURIA [None]
